FAERS Safety Report 24268568 (Version 1)
Quarter: 2024Q3

REPORT INFORMATION
  Report Type: Spontaneous
  Country: US (occurrence: None)
  Receive Date: 20240829
  Receipt Date: 20240829
  Transmission Date: 20241017
  Serious: Yes (Hospitalization)
  Sender: Public
  Company Number: None

PATIENT
  Sex: Male

DRUGS (4)
  1. VEMLIDY [Suspect]
     Active Substance: TENOFOVIR ALAFENAMIDE FUMARATE
     Indication: Chronic hepatitis C
     Dosage: FREQUENCY : DAILY;?
     Route: 048
     Dates: start: 202407
  2. EPCLUSA [Concomitant]
  3. ENTECAVIR [Concomitant]
  4. FYLNETRA PFS [Concomitant]

REACTIONS (4)
  - Balance disorder [None]
  - Tremor [None]
  - Amnesia [None]
  - Headache [None]
